FAERS Safety Report 16414762 (Version 5)
Quarter: 2019Q2

REPORT INFORMATION
  Report Type: Spontaneous
  Country: US (occurrence: US)
  Receive Date: 20190611
  Receipt Date: 20190620
  Transmission Date: 20190711
  Serious: No
  Sender: FDA-Public Use
  Company Number: US-PFIZER INC-2019194113

PATIENT
  Age: 73 Year
  Sex: Male

DRUGS (3)
  1. LYRICA [Suspect]
     Active Substance: PREGABALIN
     Indication: ANORECTAL DISORDER
     Dosage: 300 MG, 1X/DAY
  2. LYRICA [Suspect]
     Active Substance: PREGABALIN
     Dosage: 300 MG, 1X/DAY, [1 CAPSULE ONCE A DAY ORALLY 90 DAYS]/ [FOR 90 DAYS]
     Route: 048
  3. LYRICA [Suspect]
     Active Substance: PREGABALIN
     Indication: PAIN
     Dosage: 350 MG, DAILY (50MG, ONCE DAILY AND 300MG ONCE DAILY)

REACTIONS (3)
  - Pain [Unknown]
  - Neuralgia [Unknown]
  - Therapeutic product effect incomplete [Unknown]
